FAERS Safety Report 12869457 (Version 1)
Quarter: 2016Q4

REPORT INFORMATION
  Report Type: Spontaneous
  Country: US (occurrence: US)
  Receive Date: 20161020
  Receipt Date: 20161020
  Transmission Date: 20170207
  Serious: Yes (Hospitalization)
  Sender: FDA-Public Use
  Company Number: None

PATIENT
  Age: 82 Year
  Sex: Male
  Weight: 79 kg

DRUGS (5)
  1. ENZALUTAMIDE (XTANDI) [Concomitant]
  2. TRIAMETERENCE-HCTZ (DYAZIDE) [Concomitant]
  3. LEUPROLIDE (LUPRON DEPOT) [Concomitant]
  4. CIPROFLOXACIN. [Suspect]
     Active Substance: CIPROFLOXACIN
     Indication: STENT PLACEMENT
  5. NIFEDIPINE (ADALAT CC) [Concomitant]

REACTIONS (4)
  - Dizziness [None]
  - Syncope [None]
  - Fall [None]
  - Asthenia [None]

NARRATIVE: CASE EVENT DATE: 20160507
